FAERS Safety Report 17623218 (Version 1)
Quarter: 2020Q2

REPORT INFORMATION
  Report Type: Spontaneous
  Country: DE (occurrence: DE)
  Receive Date: 20200403
  Receipt Date: 20200403
  Transmission Date: 20200713
  Serious: Yes (Other)
  Sender: FDA-Public Use
  Company Number: DE-PFIZER INC-2020133632

PATIENT
  Sex: Male

DRUGS (3)
  1. LANTAREL [Suspect]
     Active Substance: METHOTREXATE SODIUM
     Dosage: 22.5 MG, WEEKLY
     Route: 048
  2. LANTAREL [Suspect]
     Active Substance: METHOTREXATE SODIUM
     Dosage: 112 MG, WEEKLY
     Route: 048
     Dates: start: 202003
  3. LANTAREL [Suspect]
     Active Substance: METHOTREXATE SODIUM
     Indication: RHEUMATIC DISORDER
     Dosage: 20 MG, WEEKLY
     Route: 048

REACTIONS (3)
  - Overdose [Unknown]
  - Prescribed overdose [Unknown]
  - Mucosal pain [Unknown]

NARRATIVE: CASE EVENT DATE: 202003
